FAERS Safety Report 7867524-6 (Version None)
Quarter: 2011Q4

REPORT INFORMATION
  Report Type: 
  Country: None (occurrence: None)
  Receive Date: 20111028
  Receipt Date: 20111019
  Transmission Date: 20120403
  Serious: Yes (Other)
  Sender: FDA-Public Use
  Company Number: PHHY2011JP92804

PATIENT
  Age: 5 Year
  Sex: Female

DRUGS (1)
  1. CARBAMAZEPINE [Suspect]
     Indication: GRAND MAL CONVULSION
     Dosage: UNK UKN, UNK
     Route: 048

REACTIONS (2)
  - CEREBRAL SALT-WASTING SYNDROME [None]
  - CLONIC CONVULSION [None]
